FAERS Safety Report 18560634 (Version 4)
Quarter: 2020Q4

REPORT INFORMATION
  Report Type: Spontaneous
  Country: JP (occurrence: JP)
  Receive Date: 20201130
  Receipt Date: 20201228
  Transmission Date: 20210114
  Serious: Yes (Death)
  Sender: FDA-Public Use
  Company Number: JP-ASTRAZENECA-2020SF58076

PATIENT
  Age: 79 Year
  Sex: Female
  Weight: 40 kg

DRUGS (8)
  1. ENDOXAN [Concomitant]
     Active Substance: CYCLOPHOSPHAMIDE
     Dosage: 500 MG
     Dates: start: 20200312
  2. SOLU-MEDROL [Concomitant]
     Active Substance: METHYLPREDNISOLONE SODIUM SUCCINATE
     Dosage: 1 G FOR 3 DAYS ONCE A WEEK
     Dates: start: 20200318
  3. PREDONINE [Concomitant]
     Active Substance: PREDNISOLONE
     Dosage: 30 MG
     Dates: start: 20200315
  4. PREDONINE [Concomitant]
     Active Substance: PREDNISOLONE
     Dosage: 40 MG
     Dates: start: 20200315
  5. SOLU-MEDROL [Concomitant]
     Active Substance: METHYLPREDNISOLONE SODIUM SUCCINATE
     Dosage: 1 G FOR 3 DAYS ONCE A WEEK
     Dates: start: 20200316
  6. TAGRISSO [Suspect]
     Active Substance: OSIMERTINIB
     Indication: NON-SMALL CELL LUNG CANCER
     Route: 048
     Dates: start: 20200128, end: 20200309
  7. OMEGACIN [Concomitant]
     Active Substance: BIAPENEM
     Dosage: 0.6 MG
     Dates: start: 20200316
  8. BAKTAR [Concomitant]
     Active Substance: SULFAMETHOXAZOLE\TRIMETHOPRIM
     Dosage: 1 TABLET X ONCE/DAY
     Dates: start: 20200318

REACTIONS (1)
  - Interstitial lung disease [Fatal]

NARRATIVE: CASE EVENT DATE: 20200309
